FAERS Safety Report 6748408-3 (Version None)
Quarter: 2010Q2

REPORT INFORMATION
  Report Type: 
  Country: None (occurrence: None)
  Receive Date: 20100525
  Receipt Date: 20100311
  Transmission Date: 20101027
  Serious: Yes (Other)
  Sender: FDA-Public Use
  Company Number: WAES 1003USA01842

PATIENT
  Age: 78 Year
  Sex: Female

DRUGS (7)
  1. COZAAR [Suspect]
     Indication: HYPERTENSION
     Dosage: 100 MG/DAILY/PO
     Route: 048
     Dates: start: 20020101, end: 20020101
  2. COZAAR [Suspect]
     Indication: HYPERTENSION
     Dosage: 50 MG/DAILY/PO ; 50 MG/DAILY/PO
     Route: 048
     Dates: start: 20020101, end: 20020101
  3. COZAAR [Suspect]
     Indication: HYPERTENSION
     Dosage: 50 MG/DAILY/PO ; 50 MG/DAILY/PO
     Route: 048
     Dates: start: 20020101, end: 20090101
  4. COZAAR [Suspect]
     Indication: HYPERTENSION
     Dosage: 25 MG/DAILY/PO
     Route: 048
     Dates: start: 20090101
  5. RHINOCORT [Suspect]
     Dates: start: 20050101, end: 20090101
  6. ECOTRIN [Concomitant]
  7. NORVASC [Concomitant]

REACTIONS (4)
  - ALOPECIA [None]
  - CEREBROVASCULAR ACCIDENT [None]
  - INTRAOCULAR PRESSURE INCREASED [None]
  - SKIN DISORDER [None]
